FAERS Safety Report 7206205-9 (Version None)
Quarter: 2011Q1

REPORT INFORMATION
  Report Type: 
  Country: None (occurrence: None)
  Receive Date: 20110103
  Receipt Date: 20101221
  Transmission Date: 20110831
  Serious: Yes (Hospitalization, Other)
  Sender: FDA-Public Use
  Company Number: US-ELI_LILLY_AND_COMPANY-US201008003500

PATIENT
  Sex: Female
  Weight: 61.678 kg

DRUGS (13)
  1. CALTRATE +D [Concomitant]
     Dosage: 600 D/F, 2/D
  2. TYLENOL (CAPLET) [Concomitant]
     Dosage: 1 D/F, AS NEEDED
  3. HYDROXYCHLOROQUINE SULFATE [Concomitant]
  4. FORTEO [Suspect]
     Dosage: 20 UG, DAILY (1/D)
     Dates: start: 20100802
  5. METHOTREXATE [Concomitant]
  6. FORTEO [Suspect]
     Indication: OSTEOPOROSIS
     Dosage: 20 UG, DAILY (1/D)
     Dates: end: 20091009
  7. AMLODIPINE [Concomitant]
     Dosage: 5 MG, UNK
  8. PLAQUENIL [Concomitant]
     Dosage: 400 D/F, DAILY (1/D)
  9. PREDNISONE [Concomitant]
     Dosage: 3 D/F, DAILY (1/D)
  10. VITAMIN D [Concomitant]
     Dosage: 50000 MG, WEEKLY (1/W)
  11. LISINOPRIL AND HYDROCHLOROTHIAZIDE [Concomitant]
     Dosage: 20 MG, DAILY (1/D)
  12. GEMFIBROZIL [Concomitant]
     Dosage: 600 MG, 2/D
  13. VICODIN [Concomitant]
     Dosage: 1 D/F, DAILY (1/D)

REACTIONS (9)
  - WRIST FRACTURE [None]
  - FALL [None]
  - HYPOACUSIS [None]
  - HIP FRACTURE [None]
  - STAPHYLOCOCCAL INFECTION [None]
  - ANKLE FRACTURE [None]
  - PAIN [None]
  - DEVICE BREAKAGE [None]
  - BONE DENSITY DECREASED [None]
